FAERS Safety Report 5515896-X (Version None)
Quarter: 2007Q4

REPORT INFORMATION
  Report Type: 
  Country: None (occurrence: None)
  Receive Date: 20071109
  Receipt Date: 20071025
  Transmission Date: 20080405
  Serious: Yes (Hospitalization)
  Sender: FDA-Public Use
  Company Number: A-CH2007-18148

PATIENT
  Sex: 0

DRUGS (1)
  1. TRACLEER [Suspect]
     Indication: SKIN ULCER
     Dosage: 125 MG, BID, ORAL
     Route: 048

REACTIONS (4)
  - ASTHENIA [None]
  - BILIARY CIRRHOSIS PRIMARY [None]
  - CHOLESTASIS [None]
  - CYTOLYTIC HEPATITIS [None]
